FAERS Safety Report 9220870 (Version 1)
Quarter: 2013Q2

REPORT INFORMATION
  Report Type: Spontaneous
  Country: US (occurrence: US)
  Receive Date: 20130409
  Receipt Date: 20130409
  Transmission Date: 20140414
  Serious: Yes (Other)
  Sender: FDA-Public Use
  Company Number: US-BAYER-2013-044509

PATIENT
  Sex: Male

DRUGS (1)
  1. ALEVE CAPLET [Suspect]
     Dosage: UNK

REACTIONS (7)
  - Shock [None]
  - Foaming at mouth [None]
  - Blood pressure decreased [None]
  - Pain [None]
  - Rash generalised [None]
  - Lip swelling [None]
  - Oedema peripheral [None]
